FAERS Safety Report 9812776 (Version 1)
Quarter: 2014Q1

REPORT INFORMATION
  Report Type: Spontaneous
  Country: JP (occurrence: JP)
  Receive Date: 20140113
  Receipt Date: 20140113
  Transmission Date: 20141002
  Serious: Yes (Hospitalization)
  Sender: FDA-Public Use
  Company Number: JP-MYLANLABS-2014S1000266

PATIENT
  Age: 70 Year
  Sex: Male

DRUGS (5)
  1. OXALIPLATIN [Suspect]
     Indication: METASTASES TO LIVER
     Dosage: 85MG/M2 ON DAY 1
     Route: 041
  2. CALCIUM LEVOFOLINATE [Suspect]
     Indication: METASTASES TO LIVER
     Dosage: 200MG/M2 ON DAY 1
     Route: 041
  3. IRINOTECAN [Suspect]
     Indication: METASTASES TO LIVER
     Dosage: 150MG/M2 ON DAY 1
     Route: 041
  4. FLUOROURACIL [Concomitant]
     Indication: METASTASES TO LIVER
     Dosage: 400MG/M2 ON DAY 1
     Route: 041
  5. FLUOROURACIL [Concomitant]
     Indication: METASTASES TO LIVER
     Dosage: 2400MG/M2 AT 46HOURS
     Route: 041

REACTIONS (2)
  - Pulmonary oedema [Unknown]
  - Shock [Recovered/Resolved]
